FAERS Safety Report 8340312 (Version 5)
Quarter: 2012Q4

REPORT INFORMATION
  Report Type: 
  Country: US (occurrence: US)
  Receive Date: 20111227
  Receipt Date: 20121122
  Transmission Date: 20130627
  Serious: Yes (Hospitalization, Other)
  Sender: FDA-Public Use
  Company Number: PHEH2011US06560

PATIENT
  Age: 58 Year
  Sex: Female

DRUGS (5)
  1. GILENYA [Suspect]
     Indication: MULTIPLE SCLEROSIS
     Dosage: 0.5 mg, QD
     Route: 048
     Dates: start: 20110926
  2. GILENYA [Suspect]
     Dosage: 0.5 mg, QD
     Route: 048
  3. TYSABRI [Suspect]
     Dosage: 300 mg, QD
     Route: 042
     Dates: start: 20080826, end: 20101117
  4. TYSABRI [Suspect]
     Dosage: UNK UKN, UNK
     Dates: start: 201111
  5. COPAXONE [Concomitant]

REACTIONS (14)
  - Cognitive disorder [Recovered/Resolved]
  - Confusional state [Recovered/Resolved]
  - Memory impairment [Recovered/Resolved]
  - Apraxia [Recovered/Resolved]
  - Central nervous system lesion [Unknown]
  - Demyelination [Unknown]
  - Speech disorder [Unknown]
  - Malaise [Unknown]
  - Decreased appetite [Unknown]
  - Constipation [Unknown]
  - Abdominal pain upper [Unknown]
  - Fatigue [Unknown]
  - Vision blurred [Unknown]
  - Back pain [Unknown]
